FAERS Safety Report 9058333 (Version 1)
Quarter: 2013Q1

REPORT INFORMATION
  Report Type: Spontaneous
  Country: US (occurrence: US)
  Receive Date: 20130211
  Receipt Date: 20130211
  Transmission Date: 20140127
  Serious: Yes (Hospitalization)
  Sender: FDA-Public Use
  Company Number: US-BAYER-2013-015151

PATIENT
  Age: 31 Year
  Sex: Female
  Weight: 128 kg

DRUGS (3)
  1. YASMIN [Suspect]
  2. INSULIN [INSULIN] [Concomitant]
  3. NIPHREX [Concomitant]
     Indication: IRON DEFICIENCY

REACTIONS (2)
  - Cerebral infarction [None]
  - Carotid artery thrombosis [Recovered/Resolved]
